FAERS Safety Report 9353303 (Version 1)
Quarter: 2013Q2

REPORT INFORMATION
  Report Type: Report from Study
  Country: CA (occurrence: CA)
  Receive Date: 20130618
  Receipt Date: 20130618
  Transmission Date: 20140414
  Serious: Yes (Other)
  Sender: FDA-Public Use
  Company Number: PHHY2013CA061066

PATIENT
  Sex: Male

DRUGS (6)
  1. CLOZARIL [Suspect]
     Dosage: UNK
     Dates: start: 20060524, end: 20130501
  2. HALDOL [Concomitant]
     Dosage: UNK
  3. BENZTROPINE [Concomitant]
     Dosage: UNK
  4. CLONAZEPAM [Concomitant]
     Dosage: UNK
  5. DOCUSATE SODIUM [Concomitant]
     Dosage: UNK
  6. HALDOL DECANOATE [Concomitant]
     Dosage: UNK UKN, UNK

REACTIONS (3)
  - Cardiac disorder [Unknown]
  - Anaemia [Unknown]
  - Drug ineffective [Unknown]
